FAERS Safety Report 19251588 (Version 1)
Quarter: 2021Q2

REPORT INFORMATION
  Report Type: Report from Study
  Country: US (occurrence: US)
  Receive Date: 20210513
  Receipt Date: 20210513
  Transmission Date: 20210717
  Serious: No
  Sender: FDA-Public Use
  Company Number: US-IPSEN BIOPHARMACEUTICALS, INC.-2021-11365

PATIENT
  Sex: Male

DRUGS (2)
  1. SOMATULINE DEPOT [Suspect]
     Active Substance: LANREOTIDE ACETATE
     Indication: ACROMEGALY
     Dates: start: 2013
  2. SOMATULINE DEPOT [Suspect]
     Active Substance: LANREOTIDE ACETATE
     Dates: end: 202104

REACTIONS (3)
  - Gastrointestinal disorder [Recovered/Resolved]
  - Product administered by wrong person [Unknown]
  - Drug ineffective [Unknown]
